FAERS Safety Report 9172689 (Version 1)
Quarter: 2013Q1

REPORT INFORMATION
  Report Type: Spontaneous
  Country: US (occurrence: US)
  Receive Date: 20130319
  Receipt Date: 20130319
  Transmission Date: 20140127
  Serious: No
  Sender: FDA-Public Use
  Company Number: US-009507513-1303USA008916

PATIENT
  Sex: Female

DRUGS (2)
  1. NUVARING [Suspect]
     Indication: CONTRACEPTION
     Dosage: UNK
     Route: 067
     Dates: start: 2009, end: 2010
  2. NUVARING [Suspect]
     Dosage: UNK
     Route: 067
     Dates: start: 201102, end: 20110323

REACTIONS (1)
  - Deep vein thrombosis [Unknown]
